FAERS Safety Report 6245459-2 (Version None)
Quarter: 2009Q2

REPORT INFORMATION
  Report Type: 
  Country: None (occurrence: None)
  Receive Date: 20090625
  Receipt Date: 20090616
  Transmission Date: 20091009
  Serious: Yes (Other)
  Sender: FDA-Public Use
  Company Number: PHHY2009TR23818

PATIENT
  Age: 46 Year
  Sex: Female

DRUGS (2)
  1. VALSARTAN [Suspect]
     Indication: HYPERTENSION
  2. ANTIHYPERTENSIVE DRUGS [Concomitant]

REACTIONS (8)
  - GRANULOMA SKIN [None]
  - HYPERKERATOSIS [None]
  - LICHEN PLANUS [None]
  - LYMPHOCYTIC INFILTRATION [None]
  - PIGMENTATION DISORDER [None]
  - RASH PAPULAR [None]
  - RASH PRURITIC [None]
  - SKIN DISORDER [None]
